FAERS Safety Report 7624990-9 (Version None)
Quarter: 2011Q3

REPORT INFORMATION
  Report Type: 
  Country: None (occurrence: None)
  Receive Date: 20110721
  Receipt Date: 20110711
  Transmission Date: 20111222
  Serious: Yes (Hospitalization)
  Sender: FDA-Public Use
  Company Number: US-BIOGENIDEC-2009BI027198

PATIENT
  Age: 62 Year
  Sex: Female

DRUGS (2)
  1. AVONEX [Suspect]
     Indication: MULTIPLE SCLEROSIS
     Route: 030
     Dates: start: 19981101, end: 20050901
  2. AVONEX [Suspect]
     Route: 030
     Dates: start: 20050907

REACTIONS (4)
  - ANKLE FRACTURE [None]
  - NASAL OPERATION [None]
  - MEMORY IMPAIRMENT [None]
  - GOITRE [None]
